FAERS Safety Report 11632549 (Version 1)
Quarter: 2015Q4

REPORT INFORMATION
  Report Type: Spontaneous
  Country: CN (occurrence: CN)
  Receive Date: 20151015
  Receipt Date: 20151015
  Transmission Date: 20160304
  Serious: Yes (Other)
  Sender: FDA-Public Use
  Company Number: CN-CELGENE-035-AB007-11113857

PATIENT

DRUGS (3)
  1. ABRAXANE [Suspect]
     Active Substance: PACLITAXEL
     Route: 041
  2. ABRAXANE [Suspect]
     Active Substance: PACLITAXEL
     Indication: NON-SMALL CELL LUNG CANCER
     Route: 041
  3. ABRAXANE [Suspect]
     Active Substance: PACLITAXEL
     Route: 041

REACTIONS (15)
  - Thrombocytopenia [Unknown]
  - Nausea [Unknown]
  - Alopecia [Unknown]
  - Constipation [Unknown]
  - Neuropathy peripheral [Unknown]
  - Diarrhoea [Unknown]
  - Pyrexia [Unknown]
  - Anaemia [Unknown]
  - Hepatic function abnormal [Unknown]
  - Fatigue [Unknown]
  - Leukopenia [Unknown]
  - Lung infection [Unknown]
  - Vomiting [Unknown]
  - Radiation pneumonitis [Unknown]
  - Disease progression [Unknown]
